FAERS Safety Report 6144399-7 (Version None)
Quarter: 2009Q2

REPORT INFORMATION
  Report Type: 
  Country: None (occurrence: None)
  Receive Date: 20090406
  Receipt Date: 20090330
  Transmission Date: 20091009
  Serious: Yes (Death)
  Sender: FDA-Public Use
  Company Number: US-NOVOPROD-285816

PATIENT
  Age: 5 Day
  Weight: 3 kg

DRUGS (5)
  1. NOVOSEVEN [Suspect]
     Indication: POST PROCEDURAL HAEMORRHAGE
     Dosage: 70 CG/KG/90 MIN APART
  2. BLOOD CELLS, PACKED HUMAN [Concomitant]
  3. PLATELETS [Concomitant]
  4. FRESH FROZEN PLASMA [Concomitant]
  5. CRYOPRECIPITATES [Concomitant]

REACTIONS (1)
  - EMBOLISM [None]
